FAERS Safety Report 19211303 (Version 1)
Quarter: 2021Q2

REPORT INFORMATION
  Report Type: Spontaneous
  Country: US (occurrence: US)
  Receive Date: 20210501
  Receipt Date: 20210501
  Transmission Date: 20210717
  Serious: Yes (Hospitalization)
  Sender: FDA-Public Use
  Company Number: US-TORRENT-00011059

PATIENT
  Age: 54 Year
  Sex: Female

DRUGS (4)
  1. BUSPIRONE [Concomitant]
     Active Substance: BUSPIRONE HYDROCHLORIDE
     Indication: PRODUCT USED FOR UNKNOWN INDICATION
     Dosage: UNKNOWN
  2. FLUOXETINE [Suspect]
     Active Substance: FLUOXETINE HYDROCHLORIDE
     Indication: DEPRESSION
     Dosage: UNKNOWN
  3. FENTANYL. [Suspect]
     Active Substance: FENTANYL
     Indication: HYPERTRIGLYCERIDAEMIA
     Dosage: UNKNOWN
  4. MIDAZOLAM. [Concomitant]
     Active Substance: MIDAZOLAM
     Indication: HYPERTRIGLYCERIDAEMIA
     Dosage: UNKNOWN

REACTIONS (1)
  - Serotonin syndrome [Recovered/Resolved]
